FAERS Safety Report 6931634-8 (Version None)
Quarter: 2010Q3

REPORT INFORMATION
  Report Type: 
  Country: None (occurrence: None)
  Receive Date: 20100819
  Receipt Date: 20100809
  Transmission Date: 20110219
  Serious: Yes (Hospitalization)
  Sender: FDA-Public Use
  Company Number: GXKR2010CA08863

PATIENT
  Age: 80 Year
  Sex: Female

DRUGS (12)
  1. ACETYLSALICYLIC ACID SRT [Suspect]
     Indication: PROPHYLAXIS
     Dosage: 81 MG, QD
     Route: 065
  2. ENOXAPARIN SODIUM (NGX) [Suspect]
     Indication: THROMBOSIS PROPHYLAXIS
     Dosage: 40 MG/DAY
     Route: 065
  3. DILTIAZEM [Concomitant]
     Dosage: 240 MG, QD
     Route: 065
  4. VENLAFAXINE [Concomitant]
     Dosage: 75 MG, QD
     Route: 065
  5. LIDOCAINE [Concomitant]
     Dosage: 3 ML, UNK
  6. LIDOCAINE [Concomitant]
     Dosage: 7 ML, UNK
  7. EPINEPHRINE [Concomitant]
  8. PROPOFOL [Concomitant]
  9. BUPIVACAINE HCL [Concomitant]
     Dosage: 0.25 %, UNK
     Route: 008
  10. BUPIVACAINE HCL [Concomitant]
     Dosage: 0.1 % (5 ML/ HR)
     Route: 008
  11. MORPHINE [Concomitant]
     Dosage: 0.025 MG/ML, UNK
  12. HYDROMORPHONE [Concomitant]
     Dosage: 1 MG, Q4H
     Route: 048

REACTIONS (7)
  - CEREBRAL DECOMPRESSION [None]
  - EXTRADURAL HAEMATOMA [None]
  - FAECAL INCONTINENCE [None]
  - HAEMATOMA EVACUATION [None]
  - MOVEMENT DISORDER [None]
  - MUSCULAR WEAKNESS [None]
  - TEMPERATURE PERCEPTION TEST DECREASED [None]
